FAERS Safety Report 5085369-X (Version None)
Quarter: 2006Q3

REPORT INFORMATION
  Report Type: 
  Country: None (occurrence: None)
  Receive Date: 20060816
  Receipt Date: 20060731
  Transmission Date: 20061208
  Serious: Yes (Hospitalization)
  Sender: FDA-Public Use
  Company Number: DSA_28556_2006

PATIENT
  Age: 49 Year
  Sex: Male

DRUGS (3)
  1. ATIVAN [Suspect]
     Dosage: 2.5 MG QID PO
     Route: 048
     Dates: start: 19850101
  2. ATIVAN [Suspect]
     Dosage: 2.5 MG TID PO
     Route: 048
  3. ZOPICLONE [Concomitant]

REACTIONS (2)
  - BLOOD POTASSIUM INCREASED [None]
  - EPILEPSY [None]
